FAERS Safety Report 11274245 (Version 2)
Quarter: 2015Q3

REPORT INFORMATION
  Report Type: Report from Study
  Country: JP (occurrence: JP)
  Receive Date: 20150715
  Receipt Date: 20150803
  Transmission Date: 20151125
  Serious: Yes (Life-Threatening, Hospitalization, Other)
  Sender: FDA-Public Use
  Company Number: JP-SHIONOGI, INC-2015000684

PATIENT
  Age: 14 Year
  Sex: Female
  Weight: 48 kg

DRUGS (66)
  1. ROPION [Suspect]
     Active Substance: FLURBIPROFEN AXETIL
     Indication: PROPHYLAXIS
     Dosage: UNK
     Route: 065
     Dates: start: 20130716, end: 20130824
  2. FUNGUARD [Suspect]
     Active Substance: MICAFUNGIN SODIUM
     Indication: SEPSIS
     Dosage: UNK
     Route: 065
     Dates: start: 20130714, end: 20130828
  3. ALBUMIN [Suspect]
     Active Substance: ALBUMIN (HUMAN)
     Indication: HYPOALBUMINAEMIA
  4. ALBUMIN [Suspect]
     Active Substance: ALBUMIN (HUMAN)
     Indication: GENERALISED OEDEMA
  5. RECOMODULIN [Suspect]
     Active Substance: THROMBOMODULIN ALFA
     Indication: ABNORMAL CLOTTING FACTOR
     Dosage: UNK
     Route: 065
     Dates: start: 20130716, end: 20130804
  6. POLYMIX                            /00271401/ [Suspect]
     Active Substance: HYDROCORTISONE\NEOMYCIN SULFATE\POLYMYXIN B SULFATE
     Indication: PROPHYLAXIS
     Dosage: UNK
     Route: 048
     Dates: start: 20130718, end: 20130810
  7. RIKKUNSHITO                        /08041001/ [Suspect]
     Active Substance: HERBALS
     Indication: ILEUS PARALYTIC
     Dosage: UNK
     Route: 048
     Dates: start: 20130803, end: 20130808
  8. MUCODYNE [Suspect]
     Active Substance: CARBOCYSTEINE
     Indication: PNEUMONIA
     Dosage: UNK
     Route: 048
     Dates: start: 20130714, end: 20130729
  9. NUTRITION 12 [Concomitant]
     Active Substance: IRON\MINERALS\VITAMINS
     Indication: MALNUTRITION
     Dosage: UNK
     Route: 048
     Dates: start: 20130806, end: 20130806
  10. NICARDIPINE HYDROCHLORIDE. [Suspect]
     Active Substance: NICARDIPINE HYDROCHLORIDE
     Indication: HYPERTENSION
     Dosage: UNK
     Route: 016
     Dates: start: 20130714, end: 20130913
  11. TEICOPLANIN [Suspect]
     Active Substance: TEICOPLANIN
     Indication: SEPSIS
     Dosage: UNK
     Route: 065
     Dates: start: 20130717, end: 20130823
  12. TEICOPLANIN [Suspect]
     Active Substance: TEICOPLANIN
     Indication: PROPHYLAXIS
  13. BRIDION [Suspect]
     Active Substance: SUGAMMADEX
     Indication: PROPHYLAXIS
     Dosage: UNK
     Route: 065
     Dates: start: 20130801, end: 20130801
  14. BENECID [Suspect]
     Active Substance: PROBENECID
     Indication: RENAL IMPAIRMENT
     Dosage: UNK
     Route: 048
     Dates: start: 20130820
  15. BENAMBAX [Concomitant]
     Active Substance: PENTAMIDINE
     Indication: PROPHYLAXIS
     Dosage: UNK
     Route: 065
     Dates: start: 20130814, end: 20130926
  16. DENOSINE                           /00784201/ [Concomitant]
     Active Substance: GANCICLOVIR
     Indication: CYTOMEGALOVIRUS VIRAEMIA
     Dosage: UNK
     Route: 065
     Dates: start: 20130810, end: 20130904
  17. ENTERONON [Concomitant]
     Active Substance: LACTOBACILLUS ACIDOPHILUS
     Indication: THROMBOTIC MICROANGIOPATHY
     Dosage: UNK
     Route: 048
     Dates: start: 20130807, end: 20130926
  18. OXIFAST [Suspect]
     Active Substance: OXYCODONE
     Indication: NEUROPATHY PERIPHERAL
     Dosage: UNK
     Route: 065
     Dates: start: 20130714, end: 20130729
  19. CHLOR-TRIMETON [Suspect]
     Active Substance: CHLORPHENIRAMINE MALEATE
     Indication: PROPHYLAXIS
     Dosage: UNK
     Route: 065
     Dates: start: 20130722, end: 20130904
  20. MEROPEN                            /01250501/ [Suspect]
     Active Substance: MEROPENEM
     Indication: SEPSIS
     Dosage: UNK
     Route: 016
     Dates: start: 20130715, end: 20130728
  21. SOLU-MEDROL [Suspect]
     Active Substance: METHYLPREDNISOLONE SODIUM SUCCINATE
     Indication: CAPILLARY LEAK SYNDROME
     Dosage: UNK
     Route: 065
     Dates: start: 20130729, end: 20130813
  22. HANP [Suspect]
     Active Substance: CARPERITIDE
     Indication: HYPERTENSION
     Dosage: UNK
     Route: 065
     Dates: start: 20130730, end: 20130916
  23. CIDOFOVIR. [Suspect]
     Active Substance: CIDOFOVIR
     Indication: ADENOVIRUS INFECTION
     Dosage: UNK
     Route: 065
     Dates: start: 20130820, end: 20130830
  24. VENECTOMIN [Suspect]
     Active Substance: CANRENOATE POTASSIUM
     Indication: RENAL IMPAIRMENT
     Dosage: UNK
     Route: 065
     Dates: start: 20130820, end: 20130820
  25. ZOVIRAX [Suspect]
     Active Substance: ACYCLOVIR
     Indication: PROPHYLAXIS
     Dosage: UNK
     Route: 048
     Dates: start: 20130718, end: 20130926
  26. URSO [Suspect]
     Active Substance: URSODIOL
     Indication: PROPHYLAXIS
     Dosage: UNK
     Route: 048
     Dates: start: 20130718, end: 20130926
  27. AMLODIPINE [Suspect]
     Active Substance: AMLODIPINE BESYLATE
     Indication: HYPERTENSION
     Dosage: UNK
     Route: 048
     Dates: start: 20130714
  28. TRYPTANOL                          /00002202/ [Suspect]
     Active Substance: AMITRIPTYLINE
     Indication: NEUROPATHY PERIPHERAL
     Dosage: UNK
     Route: 048
     Dates: start: 20130714, end: 20130729
  29. ATARAX-P                           /00058402/ [Concomitant]
     Active Substance: HYDROXYZINE HYDROCHLORIDE
     Indication: PROPHYLAXIS
     Dosage: UNK
     Route: 065
     Dates: start: 20130808, end: 20130925
  30. DROLEPTAN [Concomitant]
     Active Substance: DROPERIDOL
     Indication: PROPHYLAXIS
     Dosage: UNK
     Route: 065
     Dates: start: 20130808, end: 20130808
  31. LASIX [Suspect]
     Active Substance: FUROSEMIDE
     Indication: RENAL IMPAIRMENT
     Dosage: UNK
     Route: 065
     Dates: start: 20130714, end: 20130910
  32. ZOSYN [Suspect]
     Active Substance: PIPERACILLIN SODIUM\TAZOBACTAM SODIUM
     Indication: SEPSIS
     Dosage: UNK
     Route: 065
     Dates: start: 20130714, end: 20130925
  33. HUMULIN NOS [Suspect]
     Active Substance: INSULIN HUMAN
     Indication: HYPERGLYCAEMIA
     Dosage: UNK
     Route: 065
     Dates: start: 20130730, end: 20130913
  34. PRIMPERAN [Concomitant]
     Active Substance: METOCLOPRAMIDE HYDROCHLORIDE
     Indication: ILEUS PARALYTIC
     Dosage: UNK
     Route: 065
     Dates: start: 20130808, end: 20130809
  35. OMEPRAL                            /00661201/ [Suspect]
     Active Substance: OMEPRAZOLE
     Indication: GASTROINTESTINAL DISORDER
     Dosage: UNK
     Route: 065
     Dates: start: 20130720, end: 20130924
  36. NEUTROGIN [Suspect]
     Active Substance: LENOGRASTIM
     Indication: PROPHYLAXIS
     Dosage: UNK
     Route: 065
     Dates: start: 20130715, end: 20130808
  37. PROGRAF [Suspect]
     Active Substance: TACROLIMUS\TACROLIMUS ANHYDROUS
     Indication: GRAFT VERSUS HOST DISEASE
  38. ALBUMIN [Suspect]
     Active Substance: ALBUMIN (HUMAN)
     Indication: CAPILLARY LEAK SYNDROME
     Dosage: UNK
     Route: 065
     Dates: start: 20130714, end: 20130821
  39. OLIVES [Suspect]
     Active Substance: LIDOCAINE HYDROCHLORIDE
     Indication: NEUROPATHY PERIPHERAL
     Dosage: UNK
     Route: 065
     Dates: start: 20130714, end: 20130819
  40. ADONA                              /00056903/ [Suspect]
     Active Substance: CARBAZOCHROME SODIUM SULFONATE
     Indication: ORAL DISORDER
     Dosage: UNK
     Route: 065
     Dates: start: 20130720, end: 20130729
  41. SOLU-MEDROL [Suspect]
     Active Substance: METHYLPREDNISOLONE SODIUM SUCCINATE
     Indication: GRAFT VERSUS HOST DISEASE
  42. DORMICUM [Suspect]
     Active Substance: MIDAZOLAM\MIDAZOLAM HYDROCHLORIDE
     Indication: PROPHYLAXIS
     Dosage: UNK
     Route: 065
     Dates: start: 20130730, end: 20130823
  43. PRECEDEX [Suspect]
     Active Substance: DEXMEDETOMIDINE HYDROCHLORIDE
     Indication: PROPHYLAXIS
     Dosage: UNK
     Route: 065
     Dates: start: 20130731, end: 20130823
  44. DAIKENCHUTO [Suspect]
     Active Substance: HERBALS
     Indication: ILEUS PARALYTIC
     Dosage: UNK
     Route: 048
     Dates: start: 20130803, end: 20130804
  45. ALDACTONE A [Suspect]
     Active Substance: SPIRONOLACTONE
     Indication: RENAL IMPAIRMENT
     Dosage: UNK
     Route: 048
     Dates: start: 20130820
  46. LASIX [Suspect]
     Active Substance: FUROSEMIDE
     Indication: RENAL IMPAIRMENT
     Dosage: UNK
     Route: 048
     Dates: start: 20130821
  47. PREDONINE [Concomitant]
     Active Substance: PREDNISOLONE\PREDNISOLONE ACETATE\PREDNISOLONE SODIUM SUCCINATE
     Indication: GRAFT VERSUS HOST DISEASE
  48. CALONAL [Concomitant]
     Active Substance: ACETAMINOPHEN
     Indication: PROPHYLAXIS
     Dosage: UNK
     Route: 048
     Dates: start: 20130808, end: 20130808
  49. PROGRAF [Suspect]
     Active Substance: TACROLIMUS\TACROLIMUS ANHYDROUS
     Indication: PROPHYLAXIS
     Dosage: UNK
     Route: 065
     Dates: start: 20130714, end: 20130925
  50. FENTANYL. [Suspect]
     Active Substance: FENTANYL
     Indication: PROPHYLAXIS
     Dosage: UNK
     Route: 065
     Dates: start: 20130730, end: 20130823
  51. VFEND [Suspect]
     Active Substance: VORICONAZOLE
     Indication: PROPHYLAXIS
     Dosage: UNK
     Route: 065
     Dates: start: 20130828, end: 20130928
  52. HEPARIN SODIUM. [Suspect]
     Active Substance: HEPARIN SODIUM
     Indication: PROPHYLAXIS
     Dosage: UNK
     Route: 065
     Dates: start: 20130730, end: 20130807
  53. INTRALIPOS [Suspect]
     Active Substance: SOYBEAN OIL
     Indication: MALNUTRITION
     Dosage: UNK
     Route: 065
     Dates: start: 20130820, end: 20130822
  54. SAMSCA [Suspect]
     Active Substance: TOLVAPTAN
     Indication: RENAL IMPAIRMENT
     Dosage: UNK
     Route: 048
     Dates: start: 20130820, end: 20130905
  55. PREDONINE [Concomitant]
     Active Substance: PREDNISOLONE\PREDNISOLONE ACETATE\PREDNISOLONE SODIUM SUCCINATE
     Indication: CAPILLARY LEAK SYNDROME
     Dosage: UNK
     Route: 065
     Dates: start: 20130814
  56. FINIBAX [Suspect]
     Active Substance: DORIPENEM MONOHYDRATE
     Indication: SEPSIS
     Route: 041
     Dates: start: 20130728, end: 20130830
  57. VENILON [Suspect]
     Active Substance: HUMAN IMMUNOGLOBULIN G
     Indication: PROPHYLAXIS
     Dosage: UNK
     Route: 065
     Dates: start: 20130718, end: 20130926
  58. DALTEPARIN SODIUM [Suspect]
     Active Substance: DALTEPARIN SODIUM
     Indication: PROPHYLAXIS
     Dosage: UNK
     Route: 065
     Dates: start: 20130714, end: 20130729
  59. ANTHROBIN P [Suspect]
     Active Substance: ANTITHROMBIN III HUMAN
     Indication: ABNORMAL CLOTTING FACTOR
     Dosage: UNK
     Route: 065
     Dates: start: 20130715, end: 20130812
  60. PANTOL [Suspect]
     Active Substance: DEXPANTHENOL
     Indication: ILEUS PARALYTIC
     Dosage: UNK
     Route: 065
     Dates: start: 20130802, end: 20130906
  61. ESLAX [Suspect]
     Active Substance: ROCURONIUM BROMIDE
     Indication: PROPHYLAXIS
     Dosage: UNK
     Route: 065
     Dates: start: 20130801, end: 20130801
  62. LANSOPRAZOLE. [Suspect]
     Active Substance: LANSOPRAZOLE
     Indication: GASTROINTESTINAL DISORDER
     Dosage: UNK
     Route: 048
     Dates: start: 20130714, end: 20130729
  63. SERENACE [Concomitant]
     Active Substance: HALOPERIDOL
     Indication: PROPHYLAXIS
     Dosage: UNK
     Route: 065
     Dates: start: 20130808, end: 20130808
  64. LASIX [Suspect]
     Active Substance: FUROSEMIDE
     Indication: GENERALISED OEDEMA
  65. KAYTWO N [Suspect]
     Active Substance: MENATETRENONE
     Indication: ABNORMAL CLOTTING FACTOR
     Dosage: UNK
     Route: 065
     Dates: start: 20130720, end: 20130814
  66. LYRICA [Suspect]
     Active Substance: PREGABALIN
     Indication: NEUROPATHY PERIPHERAL
     Dosage: UNK
     Route: 048
     Dates: start: 20130714

REACTIONS (10)
  - Pneumothorax [Recovered/Resolved]
  - Hepatic function abnormal [Recovered/Resolved]
  - Diarrhoea [Recovering/Resolving]
  - Cytomegalovirus viraemia [Recovered/Resolved]
  - Adenovirus infection [Recovering/Resolving]
  - Thrombotic microangiopathy [Not Recovered/Not Resolved]
  - Hyperglycaemia [Not Recovered/Not Resolved]
  - Graft versus host disease [Recovering/Resolving]
  - Respiratory disorder [Recovering/Resolving]
  - Ileus paralytic [Recovered/Resolved]

NARRATIVE: CASE EVENT DATE: 20130729
